FAERS Safety Report 6408313-9 (Version None)
Quarter: 2009Q4

REPORT INFORMATION
  Report Type: 
  Country: None (occurrence: None)
  Receive Date: 20091021
  Receipt Date: 20091015
  Transmission Date: 20100525
  Serious: Yes (Other)
  Sender: FDA-Public Use
  Company Number: US-JNJFOC-20091005670

PATIENT
  Age: 60 Year
  Sex: Female

DRUGS (1)
  1. LEVAQUIN [Suspect]
     Indication: SINUSITIS
     Route: 048
     Dates: start: 20090601, end: 20090601

REACTIONS (5)
  - DYSGEUSIA [None]
  - HEADACHE [None]
  - HYPERAEMIA [None]
  - NEUROPATHY PERIPHERAL [None]
  - TREMOR [None]
